FAERS Safety Report 4981832-8 (Version None)
Quarter: 2006Q2

REPORT INFORMATION
  Report Type: 
  Country: None (occurrence: None)
  Receive Date: 20060421
  Receipt Date: 20060414
  Transmission Date: 20061013
  Serious: Yes (Other)
  Sender: FDA-Public Use
  Company Number: EM2006-0226

PATIENT
  Age: 48 Year
  Sex: Male

DRUGS (14)
  1. PROLEUKIN [Suspect]
     Indication: HIV INFECTION
     Dosage: SUBCUTAN.
     Route: 058
     Dates: start: 19981222, end: 20051126
  2. GENTAMICIN (GENTAMICIN) EYE DROPS [Concomitant]
  3. PREDNISOLONE (PREDNISOLONE) EYE DROPS [Concomitant]
  4. OFLOXACIN (OFLOXACIN) EYE DROPS [Concomitant]
  5. ARTIFICIAL TEARS [Concomitant]
  6. ABACAVIR [Concomitant]
  7. LAMIVUDINE [Concomitant]
  8. ZIDOVUDINE [Concomitant]
  9. CLINDAMYCIN HYDROCHLORIDE [Concomitant]
  10. DORZOLAMIDE (DORZOLAMIDE) [Concomitant]
  11. EPSOM SALTS (MAGNESIUM SULFATE) [Concomitant]
  12. FLUNISOLIDE (FLUNISOLIDE) [Concomitant]
  13. LORATADINE [Concomitant]
  14. VITAMIN B COMPLEX WITH C (ASCORBIC ACID, CALCIUM PANTOTHENATE, CYANOCO [Concomitant]

REACTIONS (7)
  - EYE PRURITUS [None]
  - HERPES VIRUS INFECTION [None]
  - OPTIC NEURITIS [None]
  - PAPILLOEDEMA [None]
  - PHOTOPHOBIA [None]
  - UVEITIS [None]
  - VISION BLURRED [None]
